FAERS Safety Report 19939195 (Version 1)
Quarter: 2021Q4

REPORT INFORMATION
  Report Type: Spontaneous
  Country: BR (occurrence: BR)
  Receive Date: 20211011
  Receipt Date: 20211011
  Transmission Date: 20220303
  Serious: Yes (Death, Other)
  Sender: FDA-Public Use
  Company Number: BR-CELGENE-BRA-20211000360

PATIENT
  Age: 83 Year
  Sex: Female
  Weight: 45 kg

DRUGS (1)
  1. VIDAZA [Suspect]
     Active Substance: AZACITIDINE
     Indication: Myelodysplastic syndrome
     Dosage: 75MG OR 100MG, ONE APPLICATION A DAY FOR 7 DAY WITHIN 5 WEEKS
     Route: 058
     Dates: start: 20160519, end: 202010

REACTIONS (10)
  - Death [Fatal]
  - Erysipelas [Unknown]
  - Localised infection [Recovered/Resolved]
  - Lymphadenopathy [Unknown]
  - Poor peripheral circulation [Unknown]
  - Discouragement [Unknown]
  - Gait inability [Unknown]
  - Decreased appetite [Unknown]
  - Erythema [Unknown]
  - Asthenia [Unknown]

NARRATIVE: CASE EVENT DATE: 20200401
